FAERS Safety Report 9432928 (Version 2)
Quarter: 2014Q1

REPORT INFORMATION
  Report Type: Spontaneous
  Country: US (occurrence: US)
  Receive Date: 20130731
  Receipt Date: 20140226
  Transmission Date: 20141002
  Serious: Yes (Hospitalization, Other)
  Sender: FDA-Public Use
  Company Number: US-009507513-1307USA017142

PATIENT
  Sex: Female
  Weight: 68.27 kg

DRUGS (2)
  1. NUVARING [Suspect]
     Indication: HORMONE THERAPY
     Dosage: UNK
     Dates: start: 200310, end: 200310
  2. LEVOTHYROXINE SODIUM [Concomitant]
     Dosage: 125-130 MCG
     Dates: start: 1990

REACTIONS (4)
  - Pulmonary embolism [Unknown]
  - Deep vein thrombosis [Unknown]
  - Coagulopathy [Unknown]
  - Off label use [Unknown]
